FAERS Safety Report 5413987-5 (Version None)
Quarter: 2007Q3

REPORT INFORMATION
  Report Type: 
  Country: None (occurrence: None)
  Receive Date: 20070814
  Receipt Date: 20070801
  Transmission Date: 20080115
  Serious: Yes (Hospitalization, Other)
  Sender: FDA-Public Use
  Company Number: US-ELI_LILLY_AND_COMPANY-US200707006739

PATIENT
  Age: 64 Year
  Sex: Female

DRUGS (8)
  1. CYMBALTA [Suspect]
     Dosage: 30 MG, UNK
     Dates: start: 20070707, end: 20070713
  2. CYMBALTA [Suspect]
     Dosage: 60 MG, DAILY (1/D)
     Dates: start: 20070714, end: 20070721
  3. GEODON [Concomitant]
     Dates: end: 20070701
  4. PROFENAL [Concomitant]
  5. LISINOPRIL [Concomitant]
     Dates: end: 20070701
  6. PROPRANOLOL [Concomitant]
     Dates: start: 20070101, end: 20070701
  7. WELLBUTRIN [Concomitant]
     Dosage: 300 MG, DAILY (1/D)
     Dates: end: 20070725
  8. ZYPREXA [Suspect]

REACTIONS (8)
  - DEPRESSION [None]
  - DIZZINESS [None]
  - DRUG WITHDRAWAL SYNDROME [None]
  - HYPERSENSITIVITY [None]
  - HYPOTENSION [None]
  - PANCYTOPENIA [None]
  - RENAL FAILURE [None]
  - WEIGHT INCREASED [None]
